FAERS Safety Report 9774159 (Version 1)
Quarter: 2013Q4

REPORT INFORMATION
  Report Type: Spontaneous
  Country: FR (occurrence: FR)
  Receive Date: 20131220
  Receipt Date: 20131220
  Transmission Date: 20140711
  Serious: Yes (Other)
  Sender: FDA-Public Use
  Company Number: FR-BRISTOL-MYERS SQUIBB COMPANY-19909456

PATIENT
  Age: 57 Year
  Sex: Female

DRUGS (1)
  1. KENACORT INJ [Suspect]
     Dates: start: 2012

REACTIONS (2)
  - Lipodystrophy acquired [Recovered/Resolved with Sequelae]
  - Injection site reaction [None]
